FAERS Safety Report 9262684 (Version 1)
Quarter: 2013Q2

REPORT INFORMATION
  Report Type: Spontaneous
  Country: US (occurrence: US)
  Receive Date: 20130430
  Receipt Date: 20130430
  Transmission Date: 20140414
  Serious: Yes (Other)
  Sender: FDA-Public Use
  Company Number: US-PFIZER INC-2013132714

PATIENT
  Age: 60 Year
  Sex: Female
  Weight: 58.96 kg

DRUGS (2)
  1. ESTRING [Suspect]
     Indication: VULVOVAGINAL DRYNESS
     Dosage: UNK, EVERY 3 MONTHS
     Route: 067
     Dates: start: 201304
  2. CLIMARA [Suspect]
     Indication: MENOPAUSAL SYMPTOMS
     Dosage: UNK, WEEKLY
     Dates: start: 2012

REACTIONS (1)
  - Vaginal haemorrhage [Not Recovered/Not Resolved]
